FAERS Safety Report 8783095 (Version 6)
Quarter: 2013Q3

REPORT INFORMATION
  Report Type: Report from Study
  Country: US (occurrence: US)
  Receive Date: 20120914
  Receipt Date: 20130930
  Transmission Date: 20140515
  Serious: Yes (Hospitalization)
  Sender: FDA-Public Use
  Company Number: US-ROCHE-1112022

PATIENT
  Age: 0 Day
  Sex: Female
  Weight: 3.18 kg

DRUGS (17)
  1. OMALIZUMAB [Suspect]
     Indication: ASTHMA
     Route: 064
     Dates: start: 20110921
  2. OMALIZUMAB [Suspect]
     Route: 064
     Dates: start: 20111005
  3. OMALIZUMAB [Suspect]
     Route: 064
     Dates: start: 20111019
  4. OMALIZUMAB [Suspect]
     Route: 064
     Dates: start: 20111102
  5. OMALIZUMAB [Suspect]
     Route: 064
     Dates: start: 20111116
  6. OMALIZUMAB [Suspect]
     Route: 064
     Dates: start: 20111130
  7. OMALIZUMAB [Suspect]
     Route: 064
     Dates: start: 20111214
  8. OMALIZUMAB [Suspect]
     Route: 064
     Dates: start: 20120613
  9. OMALIZUMAB [Suspect]
     Route: 064
     Dates: start: 20120627
  10. OMALIZUMAB [Suspect]
     Route: 064
     Dates: start: 20120711
  11. OMALIZUMAB [Suspect]
     Route: 064
     Dates: start: 20120725
  12. OMALIZUMAB [Suspect]
     Route: 063
     Dates: start: 20120914
  13. OMALIZUMAB [Suspect]
     Route: 063
     Dates: start: 20120928
  14. OMALIZUMAB [Suspect]
     Route: 063
     Dates: start: 20121012
  15. OMALIZUMAB [Suspect]
     Route: 063
     Dates: start: 20121026
  16. OMALIZUMAB [Suspect]
     Route: 063
     Dates: start: 20121109
  17. OMALIZUMAB [Suspect]
     Route: 063
     Dates: start: 20121123

REACTIONS (6)
  - Weight decreased [Recovered/Resolved]
  - Maternal exposure timing unspecified [Unknown]
  - Gastrooesophageal reflux disease [Not Recovered/Not Resolved]
  - Urticaria [Recovered/Resolved]
  - Lactose intolerance [Unknown]
  - Upper respiratory tract infection [Unknown]
